FAERS Safety Report 8770671 (Version 2)
Quarter: 2012Q4

REPORT INFORMATION
  Report Type: 
  Country: US (occurrence: US)
  Receive Date: 20120906
  Receipt Date: 20121119
  Transmission Date: 20130627
  Serious: No
  Sender: FDA-Public Use
  Company Number: US-009507513-1209USA001286

PATIENT
  Sex: Female

DRUGS (3)
  1. PEGINTRON [Suspect]
     Indication: HEPATITIS C
     Dosage: 80 Microgram, qw
     Route: 058
     Dates: start: 20120807
  2. TELAPREVIR [Suspect]
     Indication: HEPATITIS C
     Dosage: UNK
  3. RIBASPHERE [Suspect]
     Indication: HEPATITIS C
     Dosage: UNK

REACTIONS (7)
  - Rash pruritic [Unknown]
  - Stomatitis [Unknown]
  - Fatigue [Unknown]
  - Nausea [Unknown]
  - Influenza like illness [Unknown]
  - Rash erythematous [Unknown]
  - Urticaria [Unknown]
